FAERS Safety Report 7408370-7 (Version None)
Quarter: 2011Q2

REPORT INFORMATION
  Report Type: 
  Country: None (occurrence: None)
  Receive Date: 20110412
  Receipt Date: 20091113
  Transmission Date: 20111010
  Serious: Yes (Death, Other)
  Sender: FDA-Public Use
  Company Number: US-BAYER-200939815NA

PATIENT
  Age: 67 Year
  Sex: Female
  Weight: 70 kg

DRUGS (12)
  1. LANTUS [Concomitant]
  2. LASIX [Concomitant]
     Dosage: 20 MG, UNK
     Route: 042
     Dates: start: 20050208
  3. AMIODARONE HCL [Concomitant]
     Dosage: UNK
     Route: 042
     Dates: start: 20050208
  4. BENADRYL [Concomitant]
     Dosage: UNK
     Dates: start: 20050208
  5. BUMEX [Concomitant]
     Dosage: UNK
     Dates: start: 20050208
  6. AVAPRO [Concomitant]
     Dosage: 300 MG, QD
     Route: 048
  7. TISSEEL KIT [Concomitant]
     Dosage: UNK
     Dates: start: 20050208
  8. HUMALOG [Concomitant]
  9. RED BLOOD CELLS [Concomitant]
     Dosage: UNK
     Dates: start: 20050208
  10. TRASYLOL [Suspect]
     Indication: CORONARY ARTERY BYPASS
     Dosage: TEST DOSE 1ML
     Route: 042
     Dates: start: 20050208, end: 20050208
  11. INSULIN [Concomitant]
     Dosage: UNK
     Route: 042
     Dates: start: 20050208
  12. PROTAMINE SULFATE [Concomitant]
     Route: 042

REACTIONS (13)
  - EMOTIONAL DISTRESS [None]
  - PAIN [None]
  - DEATH [None]
  - MYOCARDIAL INFARCTION [None]
  - RENAL INJURY [None]
  - RENAL FAILURE [None]
  - RENAL IMPAIRMENT [None]
  - STRESS [None]
  - ANXIETY [None]
  - ANHEDONIA [None]
  - UNEVALUABLE EVENT [None]
  - FEAR [None]
  - INJURY [None]
